FAERS Safety Report 24993062 (Version 1)
Quarter: 2025Q1

REPORT INFORMATION
  Report Type: Spontaneous
  Country: CA (occurrence: CA)
  Receive Date: 20250221
  Receipt Date: 20250221
  Transmission Date: 20250408
  Serious: Yes (Other)
  Sender: NOVO NORDISK
  Company Number: None

PATIENT
  Age: 9 Year
  Sex: Male

DRUGS (8)
  1. NORDITROPIN [Suspect]
     Active Substance: SOMATROPIN
     Route: 058
  2. NORDITROPIN [Suspect]
     Active Substance: SOMATROPIN
     Route: 058
  3. NORDITROPIN [Suspect]
     Active Substance: SOMATROPIN
     Route: 058
  4. NORDITROPIN [Suspect]
     Active Substance: SOMATROPIN
     Route: 058
  5. NORDITROPIN [Suspect]
     Active Substance: SOMATROPIN
     Indication: Prader-Willi syndrome
     Route: 058
  6. IRON [Concomitant]
     Active Substance: IRON
  7. OXYGEN [Concomitant]
     Active Substance: OXYGEN
  8. SYNTHROID [Concomitant]
     Active Substance: LEVOTHYROXINE SODIUM
     Indication: Central hypothyroidism

REACTIONS (5)
  - Bruxism [Not Recovered/Not Resolved]
  - Disease progression [Not Recovered/Not Resolved]
  - Feeding disorder [Not Recovered/Not Resolved]
  - Scoliosis [Not Recovered/Not Resolved]
  - Headache [Not Recovered/Not Resolved]
